FAERS Safety Report 16474938 (Version 1)
Quarter: 2019Q3

REPORT INFORMATION
  Report Type: Spontaneous
  Country: US (occurrence: US)
  Receive Date: 20190624
  Receipt Date: 20190624
  Transmission Date: 20191004
  Serious: Yes (Life-Threatening, Hospitalization)
  Sender: FDA-Public Use
  Company Number: None

PATIENT
  Age: 48 Year
  Sex: Female
  Weight: 174.6 kg

DRUGS (8)
  1. CIPROFLAXIN [Suspect]
     Active Substance: CIPROFLOXACIN
     Indication: DIVERTICULITIS
     Dosage: ?          QUANTITY:1 TABLET(S);?
     Route: 048
     Dates: start: 20181102, end: 20181130
  2. LYRICA [Concomitant]
     Active Substance: PREGABALIN
  3. VIT D [Concomitant]
     Active Substance: VITAMIN D NOS
  4. POTASSIUM CHLORIDE. [Concomitant]
     Active Substance: POTASSIUM CHLORIDE
  5. CETIRIZINE [Concomitant]
     Active Substance: CETIRIZINE HYDROCHLORIDE
  6. IRON [Concomitant]
     Active Substance: IRON
  7. VITA CAPS [Concomitant]
  8. METROPOL [Concomitant]

REACTIONS (5)
  - Tendon disorder [None]
  - Anaemia [None]
  - Renal failure [None]
  - Drug hypersensitivity [None]
  - Laboratory test abnormal [None]

NARRATIVE: CASE EVENT DATE: 20190104
